FAERS Safety Report 8138501-5 (Version None)
Quarter: 2012Q1

REPORT INFORMATION
  Report Type: 
  Country: None (occurrence: None)
  Receive Date: 20120215
  Receipt Date: 20120215
  Transmission Date: 20120608
  Serious: Yes (Death)
  Sender: FDA-Public Use
  Company Number: CN-ROCHE-1040054

PATIENT
  Sex: Male

DRUGS (2)
  1. MYCOPHENOLATE MOFETIL (CELLCEPT) [Suspect]
     Indication: RENAL TRANSPLANT
     Route: 048
  2. PROGRAF [Concomitant]
     Indication: RENAL TRANSPLANT

REACTIONS (1)
  - CEREBRAL HAEMORRHAGE [None]
